FAERS Safety Report 8761375 (Version 1)
Quarter: 2012Q4

REPORT INFORMATION
  Report Type: 
  Country: US (occurrence: US)
  Receive Date: 20120829
  Receipt Date: 20120829
  Transmission Date: 20130627
  Serious: Yes (Other)
  Sender: FDA-Public Use
  Company Number: US-PFIZER INC-2012208508

PATIENT
  Age: 37 Year
  Sex: Male

DRUGS (1)
  1. METHYLPREDNISOLONE SODIUM SUCCINATE [Suspect]
     Indication: NEUROMYELITIS OPTICA
     Dosage: 1 g, 1x/day over 4 h
     Route: 042

REACTIONS (2)
  - Delirium [Recovering/Resolving]
  - Affective disorder [Recovering/Resolving]
